FAERS Safety Report 9720680 (Version 1)
Quarter: 2013Q4

REPORT INFORMATION
  Report Type: Spontaneous
  Country: DK (occurrence: DK)
  Receive Date: 20131129
  Receipt Date: 20131129
  Transmission Date: 20140711
  Serious: Yes (Hospitalization)
  Sender: FDA-Public Use
  Company Number: PHHY2013DK136331

PATIENT
  Age: 88 Year
  Sex: Female

DRUGS (8)
  1. EXELON [Suspect]
     Indication: DEMENTIA
     Dosage: 1 DF, QD
     Route: 003
     Dates: start: 20100303, end: 20131114
  2. CITALOPRAM SANDOZ [Suspect]
     Indication: DEPRESSION
     Dosage: 10 MG, QD
     Route: 048
     Dates: end: 20131114
  3. ISOPTIN [Concomitant]
     Indication: ATRIAL FIBRILLATION
     Route: 048
  4. PINEX [Concomitant]
     Indication: PAIN
  5. CETIRIZIN ACTAVIS [Concomitant]
     Indication: HYPERSENSITIVITY
     Dosage: 10 MG, UNK
     Route: 048
  6. SELO-ZOK [Concomitant]
     Indication: HYPERTENSION
     Route: 048
  7. AMLODIPINE BESYLATE [Concomitant]
     Indication: HYPERTENSION
     Route: 048
  8. HJERTEALBYL [Concomitant]
     Indication: ANTICOAGULANT THERAPY
     Route: 048

REACTIONS (2)
  - Drug-induced liver injury [Recovering/Resolving]
  - Jaundice [Recovering/Resolving]
